FAERS Safety Report 11565001 (Version 1)
Quarter: 2015Q3

REPORT INFORMATION
  Report Type: Report from Study
  Country: US (occurrence: US)
  Receive Date: 20150928
  Receipt Date: 20150928
  Transmission Date: 20151125
  Serious: No
  Sender: FDA-Public Use
  Company Number: US-EXELIXIS-CABO-15005525

PATIENT
  Age: 61 Year
  Sex: Female
  Weight: 51 kg

DRUGS (9)
  1. PERCOCET [Concomitant]
     Active Substance: ACETAMINOPHEN\OXYCODONE HYDROCHLORIDE
  2. COMETRIQ [Suspect]
     Active Substance: CABOZANTINIB S-MALATE
     Dosage: 40 MG, QD
     Route: 048
     Dates: start: 201509
  3. VITAMIN D [Concomitant]
     Active Substance: CHOLECALCIFEROL
  4. COMETRIQ [Suspect]
     Active Substance: CABOZANTINIB S-MALATE
     Indication: LUNG NEOPLASM MALIGNANT
     Dosage: 60 MG, QD
     Route: 048
     Dates: start: 20150623, end: 201508
  5. COMETRIQ [Suspect]
     Active Substance: CABOZANTINIB S-MALATE
     Dosage: 40 MG, QD
     Route: 048
     Dates: start: 201508, end: 201508
  6. COMETRIQ [Suspect]
     Active Substance: CABOZANTINIB S-MALATE
     Dosage: 20 MG, QD
     Route: 048
     Dates: start: 201508, end: 201508
  7. CELEBREX [Concomitant]
     Active Substance: CELECOXIB
  8. AMBIEN [Concomitant]
     Active Substance: ZOLPIDEM TARTRATE
  9. COMETRIQ [Suspect]
     Active Substance: CABOZANTINIB S-MALATE
     Dosage: 40MG ALTERNATING WITH 20MG DAILY
     Route: 048
     Dates: start: 20150830, end: 201509

REACTIONS (12)
  - Off label use [Unknown]
  - Abdominal pain upper [Unknown]
  - Throat irritation [Unknown]
  - Oral discomfort [Unknown]
  - Hepatic enzyme increased [Unknown]
  - Decreased appetite [Unknown]
  - Fatigue [Unknown]
  - Nausea [Unknown]
  - Constipation [Recovered/Resolved]
  - Aphonia [Unknown]
  - Dysphonia [Unknown]
  - Palmar-plantar erythrodysaesthesia syndrome [Unknown]

NARRATIVE: CASE EVENT DATE: 2015
